FAERS Safety Report 19362674 (Version 1)
Quarter: 2021Q2

REPORT INFORMATION
  Report Type: Spontaneous
  Country: ES (occurrence: ES)
  Receive Date: 20210601
  Receipt Date: 20210601
  Transmission Date: 20210717
  Serious: Yes (Other)
  Sender: FDA-Public Use
  Company Number: ES-LUNDBECK-DKLU3032216

PATIENT

DRUGS (2)
  1. VIGABATRIN (TABLET) [Suspect]
     Active Substance: VIGABATRIN
     Indication: EPILEPSY
     Dosage: 40?50 MG/KG/DAY
     Route: 048
  2. VIGABATRIN (TABLET) [Suspect]
     Active Substance: VIGABATRIN
     Route: 048

REACTIONS (2)
  - Psychotic symptom [Recovered/Resolved]
  - Drug ineffective [Recovered/Resolved]
